FAERS Safety Report 25473350 (Version 2)
Quarter: 2025Q2

REPORT INFORMATION
  Report Type: Report from Study
  Country: ZA (occurrence: ZA)
  Receive Date: 20250624
  Receipt Date: 20250626
  Transmission Date: 20250717
  Serious: Yes (Death)
  Sender: PFIZER
  Company Number: ZA-PFIZER INC-PV202500070575

PATIENT

DRUGS (2)
  1. ENCORAFENIB [Suspect]
     Active Substance: ENCORAFENIB
  2. BINIMETINIB [Suspect]
     Active Substance: BINIMETINIB

REACTIONS (1)
  - Death [Fatal]
